FAERS Safety Report 7560653-6 (Version None)
Quarter: 2011Q2

REPORT INFORMATION
  Report Type: 
  Country: None (occurrence: None)
  Receive Date: 20110621
  Receipt Date: 20110614
  Transmission Date: 20111010
  Serious: Yes (Other)
  Sender: FDA-Public Use
  Company Number: US-PFIZER INC-2011132071

PATIENT
  Sex: Male

DRUGS (2)
  1. NEURONTIN [Suspect]
  2. TOPAMAX [Suspect]
     Dosage: TAKES 16- 25MG CAPSULES A DAY

REACTIONS (1)
  - CONVULSION [None]
